FAERS Safety Report 7443555-5 (Version None)
Quarter: 2011Q2

REPORT INFORMATION
  Report Type: 
  Country: None (occurrence: None)
  Receive Date: 20110428
  Receipt Date: 20110426
  Transmission Date: 20111010
  Serious: Yes (Hospitalization, Other)
  Sender: FDA-Public Use
  Company Number: US-AMGEN-QUU432128

PATIENT
  Age: 48 Year
  Sex: Female
  Weight: 70.1 kg

DRUGS (32)
  1. NPLATE [Suspect]
     Dosage: 9 A?G/KG, UNK
     Dates: start: 20081013
  2. NPLATE [Suspect]
     Dosage: 9 A?G/KG, UNK
     Dates: start: 20081013
  3. NPLATE [Suspect]
     Dosage: 9 A?G/KG, UNK
     Dates: start: 20081013
  4. NPLATE [Suspect]
     Dosage: 9 A?G/KG, UNK
     Dates: start: 20081013
  5. NPLATE [Suspect]
     Dosage: 9 A?G/KG, UNK
     Dates: start: 20081013
  6. NPLATE [Suspect]
     Dosage: 9 A?G/KG, UNK
     Dates: start: 20081013
  7. NPLATE [Suspect]
     Dosage: 9 A?G/KG, UNK
     Dates: start: 20081013
  8. NPLATE [Suspect]
     Dosage: 9 A?G/KG, UNK
     Dates: start: 20081013
  9. NPLATE [Suspect]
     Dosage: 9 A?G/KG, UNK
     Dates: start: 20081013
  10. NPLATE [Suspect]
     Dates: start: 20081013, end: 20100809
  11. NPLATE [Suspect]
     Dates: start: 20081013, end: 20100809
  12. NPLATE [Suspect]
     Indication: IDIOPATHIC THROMBOCYTOPENIC PURPURA
     Dosage: 9 A?G/KG, UNK
     Dates: start: 20081013
  13. NPLATE [Suspect]
     Dosage: 9 A?G/KG, UNK
     Dates: start: 20081013
  14. NPLATE [Suspect]
     Dosage: 9 A?G/KG, UNK
     Dates: start: 20081013
  15. HYDROCODONE BITARTRATE AND ACETAMINOPHEN [Concomitant]
     Dosage: UNK UNK, UNK
     Route: 048
  16. NPLATE [Suspect]
     Dosage: 9 A?G/KG, UNK
     Dates: start: 20081013
  17. NPLATE [Suspect]
     Dosage: 9 A?G/KG, UNK
     Dates: start: 20081013
  18. NPLATE [Suspect]
     Dosage: 9 A?G/KG, UNK
     Dates: start: 20081013
  19. NPLATE [Suspect]
     Dosage: 9 A?G/KG, UNK
     Dates: start: 20081013
  20. NPLATE [Suspect]
     Dosage: 9 A?G/KG, UNK
     Dates: start: 20081013
  21. NPLATE [Suspect]
     Dosage: 9 A?G/KG, UNK
     Dates: start: 20081013
  22. NPLATE [Suspect]
     Dosage: 9 A?G/KG, UNK
     Dates: start: 20081013
  23. AMITRIPTYLINE [Concomitant]
     Dosage: 50 MG, QD
     Route: 048
  24. IMMUNOGLOBULINS [Concomitant]
     Dosage: 500 MG/KG, UNK
     Route: 042
     Dates: start: 20100722, end: 20100723
  25. NPLATE [Suspect]
     Dosage: 9 A?G/KG, UNK
     Dates: start: 20081013
  26. NPLATE [Suspect]
     Dosage: 9 A?G/KG, UNK
     Dates: start: 20081013
  27. NPLATE [Suspect]
     Dosage: 9 A?G/KG, UNK
     Dates: start: 20081013
  28. NPLATE [Suspect]
     Dosage: 9 A?G/KG, UNK
     Dates: start: 20081013
  29. NPLATE [Suspect]
     Dosage: 9 A?G/KG, UNK
     Dates: start: 20081013
  30. NPLATE [Suspect]
     Dosage: 9 A?G/KG, UNK
     Dates: start: 20081013
  31. NPLATE [Suspect]
     Dosage: 9 A?G/KG, UNK
     Dates: start: 20081013
  32. GABAPENTIN [Concomitant]
     Dosage: 600 MG, TID
     Route: 048

REACTIONS (2)
  - THERAPEUTIC RESPONSE DECREASED [None]
  - PLATELET COUNT DECREASED [None]
